FAERS Safety Report 17143906 (Version 1)
Quarter: 2019Q4

REPORT INFORMATION
  Report Type: Spontaneous
  Country: RO (occurrence: RO)
  Receive Date: 20191212
  Receipt Date: 20191212
  Transmission Date: 20200122
  Serious: Yes (Hospitalization)
  Sender: FDA-Public Use
  Company Number: RO-009507513-1912ROM000771

PATIENT
  Age: 33 Year
  Sex: Male
  Weight: 70 kg

DRUGS (2)
  1. DIPROPHOS [Suspect]
     Active Substance: BETAMETHASONE DIPROPIONATE\BETAMETHASONE SODIUM PHOSPHATE
     Indication: MENISCAL DEGENERATION
     Dosage: ONE AMPOULE IN THE KNEE (SINGLE ADMINISTRATION).
     Route: 014
     Dates: start: 20191106, end: 20191106
  2. DIPROPHOS [Suspect]
     Active Substance: BETAMETHASONE DIPROPIONATE\BETAMETHASONE SODIUM PHOSPHATE
     Indication: CHONDROMALACIA

REACTIONS (2)
  - Carotid artery thrombosis [Recovered/Resolved]
  - Thrombotic stroke [Recovered/Resolved]

NARRATIVE: CASE EVENT DATE: 20191108
